FAERS Safety Report 7555631-7 (Version None)
Quarter: 2011Q2

REPORT INFORMATION
  Report Type: 
  Country: None (occurrence: None)
  Receive Date: 20110617
  Receipt Date: 20080812
  Transmission Date: 20111010
  Serious: Yes (Other)
  Sender: FDA-Public Use
  Company Number: PHMT2007CA01405

PATIENT
  Sex: Female

DRUGS (1)
  1. SANDOSTATIN LAR [Suspect]
     Indication: CARCINOID TUMOUR
     Dosage: 30 MG FOR EVERY 4 WEEKS
     Route: 030
     Dates: start: 20060206

REACTIONS (8)
  - LOSS OF CONSCIOUSNESS [None]
  - EYE MOVEMENT DISORDER [None]
  - HYPOTENSION [None]
  - CONVULSION [None]
  - SYNCOPE [None]
  - DIZZINESS [None]
  - BURNING SENSATION [None]
  - INCONTINENCE [None]
